FAERS Safety Report 10133438 (Version 2)
Quarter: 2014Q2

REPORT INFORMATION
  Report Type: Report from Study
  Country: US (occurrence: US)
  Receive Date: 20140428
  Receipt Date: 20140506
  Transmission Date: 20141212
  Serious: Yes (Hospitalization, Other)
  Sender: FDA-Public Use
  Company Number: US-ABBVIE-14P-163-1229039-00

PATIENT
  Age: 39 Year
  Sex: Female

DRUGS (9)
  1. HUMIRA [Suspect]
     Indication: CROHN^S DISEASE
     Dates: start: 20140314, end: 20140314
  2. HUMIRA [Suspect]
     Dates: start: 20140328, end: 20140328
  3. HUMIRA [Suspect]
     Dates: start: 20140411, end: 20140411
  4. HUMIRA [Suspect]
     Dates: start: 20140417, end: 20140417
  5. LISINOPRIL [Concomitant]
     Indication: PRODUCT USED FOR UNKNOWN INDICATION
  6. BENTYL [Concomitant]
     Indication: PRODUCT USED FOR UNKNOWN INDICATION
  7. PREDNISONE [Concomitant]
     Indication: CROHN^S DISEASE
  8. NORCO [Concomitant]
     Indication: PRODUCT USED FOR UNKNOWN INDICATION
  9. TRAMADOL [Concomitant]
     Indication: PRODUCT USED FOR UNKNOWN INDICATION

REACTIONS (15)
  - Malaise [Not Recovered/Not Resolved]
  - Muscle spasms [Recovering/Resolving]
  - Chills [Recovered/Resolved]
  - Constipation [Not Recovered/Not Resolved]
  - Pain [Not Recovered/Not Resolved]
  - Nausea [Recovered/Resolved]
  - Vomiting [Recovered/Resolved]
  - Crohn^s disease [Recovering/Resolving]
  - Large intestinal stenosis [Not Recovered/Not Resolved]
  - Large intestinal stenosis [Not Recovered/Not Resolved]
  - Intestinal obstruction [Not Recovered/Not Resolved]
  - Hyperhidrosis [Recovered/Resolved]
  - Hypertension [Unknown]
  - Crohn^s disease [Unknown]
  - Incorrect dose administered [Unknown]
